FAERS Safety Report 19449190 (Version 1)
Quarter: 2021Q2

REPORT INFORMATION
  Report Type: Spontaneous
  Country: CN (occurrence: CN)
  Receive Date: 20210622
  Receipt Date: 20210622
  Transmission Date: 20210717
  Serious: Yes (Other)
  Sender: FDA-Public Use
  Company Number: CN-OTSUKA-2021_021254

PATIENT
  Age: 46 Year
  Sex: Female

DRUGS (2)
  1. DACOGEN [Suspect]
     Active Substance: DECITABINE
     Indication: NON-SMALL CELL LUNG CANCER
     Dosage: LOW DOSE DECITABINEAND1?5 DAYS 10 MG/M2)
     Route: 065
     Dates: start: 201709
  2. CAMRELIZUMAB [Suspect]
     Active Substance: CAMRELIZUMAB
     Indication: NON-SMALL CELL LUNG CANCER
     Dosage: 85.7143 MG (200 MG,3 IN 1 WK)
     Route: 065
     Dates: start: 201709

REACTIONS (5)
  - Decreased appetite [Unknown]
  - Fatigue [Unknown]
  - Product use in unapproved indication [Unknown]
  - Off label use [Unknown]
  - Hyperthyroidism [Unknown]
